FAERS Safety Report 18636325 (Version 1)
Quarter: 2020Q4

REPORT INFORMATION
  Report Type: Report from Study
  Country: US (occurrence: US)
  Receive Date: 20201218
  Receipt Date: 20201218
  Transmission Date: 20210114
  Serious: No
  Sender: FDA-Public Use
  Company Number: US-REGENERON PHARMACEUTICALS, INC.-2020-40541

PATIENT

DRUGS (3)
  1. EYLEA [Suspect]
     Active Substance: AFLIBERCEPT
     Dosage: 2 MG, IN THE RIGHT EYE Q4W
     Route: 031
     Dates: start: 20191024, end: 20191024
  2. EYLEA [Suspect]
     Active Substance: AFLIBERCEPT
     Dosage: 2 MG, IN THE LEFT EYE Q4W
     Route: 031
     Dates: start: 20190822, end: 20190822
  3. EYLEA [Suspect]
     Active Substance: AFLIBERCEPT
     Indication: MACULAR OEDEMA
     Dosage: 2 MG, Q4W
     Route: 031
     Dates: start: 20181220

REACTIONS (1)
  - Product dose omission issue [Unknown]
